FAERS Safety Report 17081164 (Version 1)
Quarter: 2019Q4

REPORT INFORMATION
  Report Type: Spontaneous
  Country: NL (occurrence: NL)
  Receive Date: 20191127
  Receipt Date: 20191127
  Transmission Date: 20200122
  Serious: Yes (Hospitalization, Other)
  Sender: FDA-Public Use
  Company Number: NL-TEVA-2019-NL-1141714

PATIENT
  Age: 70 Year
  Sex: Female

DRUGS (9)
  1. OMEPRAZOL [Concomitant]
     Active Substance: OMEPRAZOLE
     Indication: PROPHYLAXIS
  2. MANNITOL. [Concomitant]
     Active Substance: MANNITOL
     Dosage: ONCE EVERY 6 MONTHS, 6-12 DAYS
  3. FLUOXETINE [Concomitant]
     Active Substance: FLUOXETINE HYDROCHLORIDE
     Indication: DEPRESSION
     Route: 048
  4. INHIBIN [Concomitant]
     Indication: MUSCULAR DYSTROPHY
     Dosage: AFTER TOE OPERATION
     Dates: start: 1988
  5. OXYCODON HCL TEVA 5 MG, CAPSULES, HARD [Suspect]
     Active Substance: OXYCODONE HYDROCHLORIDE
     Indication: MUSCULAR DYSTROPHY
     Dosage: ON 08-NOV 2 TABLETS. ON 09-NOV 4 TABLETS
     Dates: start: 20191108, end: 20191109
  6. PREGABALINE [Concomitant]
     Active Substance: PREGABALIN
     Indication: NEURALGIA
  7. PARACETAMOL [Concomitant]
     Active Substance: ACETAMINOPHEN
     Indication: MUSCULAR DYSTROPHY
     Dosage: MAXIMUM 8 PIECES
     Dates: start: 1988
  8. INHIBIN [Concomitant]
     Indication: MUSCLE SPASMS
  9. LEVOTHYROXINE. [Concomitant]
     Active Substance: LEVOTHYROXINE
     Indication: DEPRESSION
     Route: 048

REACTIONS (5)
  - Coma [Recovered/Resolved]
  - Feeling abnormal [Unknown]
  - Loss of consciousness [Recovered/Resolved]
  - Amnesia [Not Recovered/Not Resolved]
  - Vomiting [Unknown]

NARRATIVE: CASE EVENT DATE: 20191110
